FAERS Safety Report 7463421-9 (Version None)
Quarter: 2011Q2

REPORT INFORMATION
  Report Type: 
  Country: None (occurrence: None)
  Receive Date: 20110506
  Receipt Date: 20110323
  Transmission Date: 20111010
  Serious: Yes (Hospitalization)
  Sender: FDA-Public Use
  Company Number: B0708178A

PATIENT
  Sex: Male

DRUGS (4)
  1. ALCOHOL [Concomitant]
  2. DUTASTERIDE/TAMSULOSIN HYDROCHLORIDE [Suspect]
     Dosage: .5MG PER DAY
     Route: 048
     Dates: start: 20100612
  3. HUMIRA [Concomitant]
     Route: 058
     Dates: start: 20070101
  4. PARACETAMOL [Concomitant]

REACTIONS (5)
  - DISORIENTATION [None]
  - ALCOHOL INTOLERANCE [None]
  - ALCOHOL POISONING [None]
  - FLUSHING [None]
  - GAIT DISTURBANCE [None]
